FAERS Safety Report 25181644 (Version 2)
Quarter: 2025Q2

REPORT INFORMATION
  Report Type: Spontaneous
  Country: US (occurrence: US)
  Receive Date: 20250410
  Receipt Date: 20250423
  Transmission Date: 20250717
  Serious: Yes (Hospitalization, Other)
  Sender: TEVA
  Company Number: US-TEVA-VS-3317348

PATIENT
  Sex: Female

DRUGS (7)
  1. PREDNISOLONE [Interacting]
     Active Substance: PREDNISOLONE
     Indication: Crohn^s disease
     Route: 065
     Dates: end: 202403
  2. VARICELLA-ZOSTER VIRUS STRAIN OKA/MERCK LIVE ANTIGEN [Interacting]
     Active Substance: VARICELLA-ZOSTER VIRUS STRAIN OKA/MERCK LIVE ANTIGEN
     Indication: Varicella immunisation
     Route: 065
  3. VARICELLA-ZOSTER VIRUS STRAIN OKA/MERCK LIVE ANTIGEN [Interacting]
     Active Substance: VARICELLA-ZOSTER VIRUS STRAIN OKA/MERCK LIVE ANTIGEN
     Indication: Varicella immunisation
     Route: 065
  4. VEDOLIZUMAB [Interacting]
     Active Substance: VEDOLIZUMAB
     Indication: Crohn^s disease
     Route: 065
  5. UPADACITINIB [Interacting]
     Active Substance: UPADACITINIB
     Indication: Crohn^s disease
     Route: 065
  6. UPADACITINIB [Interacting]
     Active Substance: UPADACITINIB
     Indication: Crohn^s disease
     Route: 065
  7. UPADACITINIB [Interacting]
     Active Substance: UPADACITINIB
     Indication: Crohn^s disease
     Route: 065
     Dates: end: 2024

REACTIONS (5)
  - Herpes zoster disseminated [Recovering/Resolving]
  - Drug interaction [Unknown]
  - Vaccine interaction [Unknown]
  - Treatment failure [Unknown]
  - Vaccination failure [Unknown]

NARRATIVE: CASE EVENT DATE: 20240701
